FAERS Safety Report 14835934 (Version 1)
Quarter: 2018Q2

REPORT INFORMATION
  Report Type: Spontaneous
  Country: US (occurrence: US)
  Receive Date: 20180502
  Receipt Date: 20180502
  Transmission Date: 20180711
  Serious: No
  Sender: FDA-Public Use
  Company Number: US-TRIS PHARMA, INC-2018TRISPO00331

PATIENT

DRUGS (2)
  1. CENTRA [Concomitant]
     Indication: PRODUCT USED FOR UNKNOWN INDICATION
     Dosage: MORNING
     Route: 065
  2. DYANAVEL XR [Suspect]
     Active Substance: AMPHETAMINE
     Indication: ATTENTION DEFICIT/HYPERACTIVITY DISORDER
     Dosage: UNK
     Route: 065

REACTIONS (3)
  - Anger [Unknown]
  - Condition aggravated [Unknown]
  - Mood swings [Unknown]
